FAERS Safety Report 24054206 (Version 1)
Quarter: 2024Q3

REPORT INFORMATION
  Report Type: Report from Study
  Country: CN (occurrence: CN)
  Receive Date: 20240705
  Receipt Date: 20240705
  Transmission Date: 20241017
  Serious: Yes (Other)
  Sender: ROCHE
  Company Number: CN-ROCHE-3577655

PATIENT
  Sex: Female

DRUGS (13)
  1. LUCENTIS [Suspect]
     Active Substance: RANIBIZUMAB
     Indication: Retinopathy of prematurity
     Dosage: 0.2 MG (BOTH EYES)
     Route: 050
     Dates: start: 20231208, end: 20231208
  2. SEVOFLURANE [Concomitant]
     Active Substance: SEVOFLURANE
     Indication: Anaesthesia
     Dosage: 12.6 ML (RESPIRATORY, INHALATION)
     Dates: start: 20231208, end: 20231208
  3. SEVOFLURANE [Concomitant]
     Active Substance: SEVOFLURANE
     Dosage: 12.6 ML (RESPIRATORY, INHALATION)
     Dates: start: 20240117, end: 20240117
  4. FENTANYL CITRATE [Concomitant]
     Active Substance: FENTANYL CITRATE
     Indication: Anaesthesia
     Dosage: 5 UG
     Dates: start: 20231208, end: 20231208
  5. FENTANYL CITRATE [Concomitant]
     Active Substance: FENTANYL CITRATE
     Dosage: 5 UG
     Dates: start: 20240117, end: 20240117
  6. PROPOFOL [Concomitant]
     Active Substance: PROPOFOL
     Indication: Anaesthesia
     Dosage: 5 MG (MEDIUM/LONG CHAIN FAT EMULSION)
     Route: 065
     Dates: start: 20231208, end: 20231208
  7. PROPOFOL [Concomitant]
     Active Substance: PROPOFOL
     Dosage: 5 MG
     Route: 065
     Dates: start: 20240117, end: 20240117
  8. MIDAZOLAM [Concomitant]
     Active Substance: MIDAZOLAM
     Indication: Anaesthesia
     Dosage: 10 MG
     Dates: start: 20231208, end: 20231208
  9. TOBRAMYCIN AND DEXAMETHASONE [Concomitant]
     Active Substance: DEXAMETHASONE\TOBRAMYCIN
     Indication: Infection
     Dosage: 1 DRP
     Dates: start: 20240116, end: 20240116
  10. ATROPINE SULFATE [Concomitant]
     Active Substance: ATROPINE SULFATE
     Indication: Anaesthesia
     Dosage: 0.05 MG
     Dates: start: 20240117, end: 20240117
  11. LIDOCAINE HYDROCHLORIDE [Concomitant]
     Active Substance: LIDOCAINE HYDROCHLORIDE
     Indication: Anaesthesia
     Dosage: 10 MG
     Dates: start: 20240117, end: 20240117
  12. EPINEPHRINE HYDROCHLORIDE [Concomitant]
     Active Substance: EPINEPHRINE HYDROCHLORIDE
     Indication: Anaesthesia
     Dosage: 100 UG (EXTERNAL USE)
     Dates: start: 20240117, end: 20240117
  13. DEXAMETHASONE SODIUM PHOSPHATE [Concomitant]
     Active Substance: DEXAMETHASONE PHOSPHATE\DEXAMETHASONE SODIUM PHOSPHATE

REACTIONS (7)
  - Leukopenia [Recovered/Resolved]
  - Ocular hypertension [Recovered/Resolved]
  - Anaemia [Recovered/Resolved]
  - Coagulation test abnormal [Recovered/Resolved]
  - Hepatic function abnormal [Not Recovered/Not Resolved]
  - Globulins decreased [Not Recovered/Not Resolved]
  - Vitreous haemorrhage [Recovered/Resolved]

NARRATIVE: CASE EVENT DATE: 20240102
